FAERS Safety Report 14261606 (Version 1)
Quarter: 2017Q4

REPORT INFORMATION
  Report Type: Spontaneous
  Country: US (occurrence: US)
  Receive Date: 20171208
  Receipt Date: 20171208
  Transmission Date: 20180321
  Serious: Yes (Hospitalization)
  Sender: FDA-Public Use
  Company Number: US-TAIHO ONCOLOGY INC-EU-2017-01478

PATIENT
  Age: 68 Year
  Sex: Male

DRUGS (1)
  1. LONSURF [Suspect]
     Active Substance: TIPIRACIL HYDROCHLORIDE\TRIFLURIDINE
     Indication: COLON CANCER
     Dosage: 40 QAM, 60 QPM
     Route: 048
     Dates: start: 20170821, end: 20171027

REACTIONS (1)
  - Brain operation [Unknown]

NARRATIVE: CASE EVENT DATE: 20171027
